FAERS Safety Report 12493379 (Version 3)
Quarter: 2016Q4

REPORT INFORMATION
  Report Type: Spontaneous
  Country: DE (occurrence: DE)
  Receive Date: 20160623
  Receipt Date: 20161103
  Transmission Date: 20170207
  Serious: Yes (Hospitalization)
  Sender: FDA-Public Use
  Company Number: DE-SA-2016SA113817

PATIENT
  Age: 26 Year
  Sex: Female
  Weight: 49.3 kg

DRUGS (9)
  1. HUMALOG [Suspect]
     Active Substance: INSULIN LISPRO
     Indication: TYPE 1 DIABETES MELLITUS
     Route: 065
     Dates: start: 20160222
  2. COLCHICUM [Concomitant]
     Active Substance: COLCHICINE
     Dates: start: 2014
  3. COLDEX [Concomitant]
     Active Substance: ACETAMINOPHEN
  4. HUMALOG [Suspect]
     Active Substance: INSULIN LISPRO
     Indication: TYPE 1 DIABETES MELLITUS
     Route: 065
     Dates: start: 2013
  5. LANTUS [Suspect]
     Active Substance: INSULIN GLARGINE
     Indication: TYPE 1 DIABETES MELLITUS
     Dosage: DOSE: 25MG, 22
     Route: 065
     Dates: start: 2013, end: 20160511
  6. TARDYFERON [Concomitant]
     Active Substance: FERROUS SULFATE
  7. FOLIO [Concomitant]
     Active Substance: FOLIC ACID
  8. RANIBIZUMAB [Concomitant]
     Active Substance: RANIBIZUMAB
     Indication: DIABETIC RETINOPATHY
     Route: 031
     Dates: start: 20140204, end: 20140204
  9. SOMINEX [Concomitant]
     Active Substance: DIPHENHYDRAMINE HYDROCHLORIDE
     Route: 065
     Dates: start: 2015

REACTIONS (6)
  - Exposure during pregnancy [Unknown]
  - Blood glucose fluctuation [Recovering/Resolving]
  - Hypoglycaemia [Recovered/Resolved]
  - Oedema peripheral [Recovering/Resolving]
  - Hypoglycaemia [Recovering/Resolving]
  - Gastroenteritis [Recovered/Resolved]

NARRATIVE: CASE EVENT DATE: 2016
